FAERS Safety Report 11820299 (Version 1)
Quarter: 2015Q4

REPORT INFORMATION
  Report Type: Spontaneous
  Country: US (occurrence: US)
  Receive Date: 20151210
  Receipt Date: 20151210
  Transmission Date: 20160305
  Serious: Yes (Hospitalization, Other)
  Sender: FDA-Public Use
  Company Number: US-BAYER-2015-481773

PATIENT
  Age: 33 Year
  Sex: Female
  Weight: 51.25 kg

DRUGS (9)
  1. HYDROCODONE BITARTRATE AND ACETAMINOPHEN [Concomitant]
     Active Substance: ACETAMINOPHEN\HYDROCODONE BITARTRATE
     Indication: PAIN
     Dosage: 10/5000
  2. ANCEF [Concomitant]
     Active Substance: CEFAZOLIN SODIUM
  3. YAZ [Suspect]
     Active Substance: DROSPIRENONE\ETHINYL ESTRADIOL
  4. LEVAQUIN [Concomitant]
     Active Substance: LEVOFLOXACIN
  5. EXCEDRIN MIGRAINE [Concomitant]
     Active Substance: ACETAMINOPHEN\ASPIRIN\CAFFEINE
  6. CEFAZOLIN [Concomitant]
     Active Substance: CEFAZOLIN
  7. POTASSIUM [Concomitant]
     Active Substance: POTASSIUM
  8. YASMIN [Suspect]
     Active Substance: DROSPIRENONE\ETHINYL ESTRADIOL
  9. NEXIUM [Concomitant]
     Active Substance: ESOMEPRAZOLE MAGNESIUM

REACTIONS (3)
  - Embolism arterial [None]
  - Cholelithiasis [None]
  - Ischaemic stroke [None]

NARRATIVE: CASE EVENT DATE: 20061015
